FAERS Safety Report 15877585 (Version 2)
Quarter: 2019Q1

REPORT INFORMATION
  Report Type: Spontaneous
  Country: KR (occurrence: KR)
  Receive Date: 20190128
  Receipt Date: 20190220
  Transmission Date: 20190417
  Serious: Yes (Hospitalization, Other)
  Sender: FDA-Public Use
  Company Number: KR-009507513-1901KOR004452

PATIENT
  Sex: Female

DRUGS (3)
  1. KEYTRUDA [Suspect]
     Active Substance: PEMBROLIZUMAB
     Dosage: 100MG/ML, QUANTITY:2, DAYS:1
     Dates: start: 20190115
  2. KEYTRUDA [Suspect]
     Active Substance: PEMBROLIZUMAB
     Indication: GALLBLADDER CANCER
     Dosage: UNK
     Dates: start: 20181220
  3. KEYTRUDA [Suspect]
     Active Substance: PEMBROLIZUMAB
     Dosage: 100MG/ML QUANTITY:2, DAYS:1
     Dates: start: 20190208

REACTIONS (5)
  - Adverse event [Unknown]
  - Adverse event [Unknown]
  - Cholelithotomy [Unknown]
  - Product use in unapproved indication [Unknown]
  - Biliary tract dilation procedure [Unknown]

NARRATIVE: CASE EVENT DATE: 2018
